FAERS Safety Report 6831810-9 (Version None)
Quarter: 2010Q3

REPORT INFORMATION
  Report Type: 
  Country: None (occurrence: None)
  Receive Date: 20100712
  Receipt Date: 20100630
  Transmission Date: 20110219
  Serious: Yes (Other)
  Sender: FDA-Public Use
  Company Number: ES-ELI_LILLY_AND_COMPANY-ES201007001503

PATIENT
  Sex: Female
  Weight: 74 kg

DRUGS (5)
  1. FORTEO [Suspect]
     Indication: OSTEOPOROSIS
     Dosage: 20 UG, DAILY (1/D)
     Route: 058
     Dates: start: 20090603, end: 20100628
  2. TEPAZEPAN [Concomitant]
     Dosage: 50 MG, DAILY (1/D)
  3. GLIZOLAN [Concomitant]
     Dosage: 50 MG, DAILY (1/D)
  4. CALCIUM SANDOZ [Concomitant]
     Dosage: 100 MG, DAILY (1/D)
  5. ESERTIA [Concomitant]
     Dosage: 15 MG, DAILY (1/D)

REACTIONS (8)
  - AMNESIA [None]
  - DIZZINESS [None]
  - FLUID RETENTION [None]
  - HEADACHE [None]
  - MYALGIA [None]
  - OEDEMA PERIPHERAL [None]
  - PAIN OF SKIN [None]
  - WEIGHT INCREASED [None]
